FAERS Safety Report 25748230 (Version 1)
Quarter: 2025Q3

REPORT INFORMATION
  Report Type: Spontaneous
  Country: CN (occurrence: CN)
  Receive Date: 20250902
  Receipt Date: 20250902
  Transmission Date: 20251021
  Serious: Yes (Hospitalization, Other)
  Sender: GLAXOSMITHKLINE
  Company Number: CN-GLAXOSMITHKLINE INC-CN2025CHI108469

PATIENT
  Age: 70 Year
  Sex: Male

DRUGS (2)
  1. TRELEGY ELLIPTA [Suspect]
     Active Substance: FLUTICASONE FUROATE\UMECLIDINIUM BROMIDE\VILANTEROL TRIFENATATE
     Indication: Chronic obstructive pulmonary disease
     Dosage: 1 PUFF(S), QD,  30INHALATIONS
  2. NUCALA [Suspect]
     Active Substance: MEPOLIZUMAB
     Indication: Asthma
     Dosage: 100 MG, Q4W

REACTIONS (15)
  - Diabetes mellitus [Unknown]
  - Cerebrovascular insufficiency [Unknown]
  - Angina pectoris [Unknown]
  - Biliary dilatation [Unknown]
  - Hyperlipidaemia [Unknown]
  - Vitamin D deficiency [Unknown]
  - Hepatic function abnormal [Unknown]
  - Thyroid disorder [Unknown]
  - Cholelithiasis [Unknown]
  - Coronary artery disease [Unknown]
  - Asthma [Recovering/Resolving]
  - Nasopharyngitis [Recovering/Resolving]
  - Chronic obstructive pulmonary disease [Recovering/Resolving]
  - Asthma [Recovering/Resolving]
  - Lower respiratory tract infection [Unknown]

NARRATIVE: CASE EVENT DATE: 20250120
